FAERS Safety Report 8390877-X (Version None)
Quarter: 2012Q2

REPORT INFORMATION
  Report Type: 
  Country: None (occurrence: None)
  Receive Date: 20120529
  Receipt Date: 20120523
  Transmission Date: 20120825
  Serious: Yes (Hospitalization)
  Sender: FDA-Public Use
  Company Number: US-BAYER-2012-011572

PATIENT
  Age: 26 Year
  Sex: Female
  Weight: 108.84 kg

DRUGS (10)
  1. YAZ [Suspect]
     Dosage: UNK
     Dates: start: 20090717, end: 20091017
  2. YASMIN [Suspect]
     Dosage: UNK
     Dates: start: 20080101, end: 20080101
  3. YASMIN [Suspect]
  4. YASMIN [Suspect]
     Dosage: UNK
     Dates: start: 20090406, end: 20091001
  5. ASTHMA/BREATHING MEDICATION [Concomitant]
     Dosage: UNK
     Dates: start: 20050101
  6. YAZ [Suspect]
     Dosage: UNK
     Dates: start: 20080101, end: 20080101
  7. IBUPROFEN [Concomitant]
  8. THYROID MEDICATION [Concomitant]
     Dosage: UNK
     Dates: start: 20080101
  9. YAZ [Suspect]
     Dosage: UNK
     Dates: start: 20090406, end: 20091001
  10. LISINOPRIL [Concomitant]
     Dosage: UNK
     Dates: start: 20080101

REACTIONS (5)
  - GALLBLADDER INJURY [None]
  - ABDOMINAL PAIN [None]
  - GENERAL PHYSICAL HEALTH DETERIORATION [None]
  - EMOTIONAL DISTRESS [None]
  - ANXIETY [None]
